FAERS Safety Report 7772213-2 (Version None)
Quarter: 2011Q3

REPORT INFORMATION
  Report Type: 
  Country: None (occurrence: None)
  Receive Date: 20110922
  Receipt Date: 20100824
  Transmission Date: 20111222
  Serious: No
  Sender: FDA-Public Use
  Company Number: US-ASTRAZENECA-2009UW05457

PATIENT
  Age: 39 Year
  Sex: Female
  Weight: 136.1 kg

DRUGS (16)
  1. SEROQUEL [Suspect]
     Route: 048
     Dates: start: 20030101
  2. RISPERDAL [Concomitant]
  3. HYDROXYZINE HCL [Concomitant]
     Dates: start: 20040802
  4. LEXAPRO [Concomitant]
     Dosage: 10 TO 20 MG
     Dates: start: 20040802
  5. THORAZINE [Concomitant]
  6. SEROQUEL [Suspect]
     Indication: SCHIZOPHRENIA
     Dosage: 100 MG, 1500 MG DAILY
     Route: 048
     Dates: start: 20000101, end: 20070101
  7. SEROQUEL [Suspect]
     Route: 048
     Dates: start: 20040806
  8. SEROQUEL [Suspect]
     Route: 048
     Dates: start: 20040806
  9. GEODON [Concomitant]
     Dosage: 20 TO 60 MG
     Dates: start: 20041006
  10. GABAPENTIN [Concomitant]
     Dosage: 100 TO 600 MG
     Dates: start: 20041012
  11. ESKALITH CR [Concomitant]
     Dates: start: 20040707
  12. SEROQUEL [Suspect]
     Route: 048
     Dates: start: 20030101
  13. SEROQUEL [Suspect]
     Indication: NERVE INJURY
     Dosage: 100 MG, 1500 MG DAILY
     Route: 048
     Dates: start: 20000101, end: 20070101
  14. CLONAZEPAM [Concomitant]
     Dates: start: 20080101
  15. AMITRIPTYLINE HCL [Concomitant]
     Dates: start: 20010101
  16. WELLBUTRIN [Concomitant]
     Dates: start: 20090101

REACTIONS (6)
  - BLOOD CHOLESTEROL INCREASED [None]
  - HYPERTENSION [None]
  - FLUID RETENTION [None]
  - OBESITY [None]
  - THYROID DISORDER [None]
  - TYPE 2 DIABETES MELLITUS [None]
